FAERS Safety Report 20085744 (Version 2)
Quarter: 2021Q4

REPORT INFORMATION
  Report Type: Report from Study
  Country: US (occurrence: US)
  Receive Date: 20211118
  Receipt Date: 20211230
  Transmission Date: 20220303
  Serious: Yes (Hospitalization, Other)
  Sender: FDA-Public Use
  Company Number: US-BoehringerIngelheim-2021-BI-137295

PATIENT
  Age: 79 Year
  Sex: Male

DRUGS (1)
  1. OFEV [Suspect]
     Active Substance: NINTEDANIB
     Indication: Idiopathic pulmonary fibrosis
     Dosage: OFEV DOSE 200MG DAILY
     Route: 048
     Dates: start: 20210913

REACTIONS (4)
  - Lung disorder [Unknown]
  - Haemorrhagic diathesis [Unknown]
  - Haemorrhoids [Unknown]
  - Herpes zoster [Unknown]

NARRATIVE: CASE EVENT DATE: 20211101
